FAERS Safety Report 11497259 (Version 4)
Quarter: 2015Q4

REPORT INFORMATION
  Report Type: Spontaneous
  Country: DE (occurrence: DE)
  Receive Date: 20150911
  Receipt Date: 20151016
  Transmission Date: 20160304
  Serious: Yes (Disabling, Other)
  Sender: FDA-Public Use
  Company Number: DE-ASTELLAS-2015US032331

PATIENT
  Age: 76 Year
  Sex: Male
  Weight: 115 kg

DRUGS (6)
  1. XTANDI [Suspect]
     Active Substance: ENZALUTAMIDE
     Indication: PROSTATE CANCER
     Route: 048
     Dates: start: 20141118, end: 201508
  2. MET                                /00012501/ [Concomitant]
     Indication: HYPERGLYCAEMIA
     Dosage: 500 UNK, UNKNOWN FREQ.
     Route: 065
  3. SIMVA [Concomitant]
     Indication: HYPERCHOLESTEROLAEMIA
     Dosage: 20 UNK, UNKNOWN FREQ.
     Route: 065
  4. XGEVA [Concomitant]
     Active Substance: DENOSUMAB
     Indication: PROSTATE CANCER METASTATIC
     Dosage: UNK UNK, UNKNOWN FREQ.
     Route: 058
     Dates: start: 20140403
  5. ZOLADEX [Concomitant]
     Active Substance: GOSERELIN ACETATE
     Indication: PRODUCT USED FOR UNKNOWN INDICATION
     Dosage: 108 UNK 3-MONTHLY
     Route: 058
     Dates: start: 201502
  6. LOSARTAN. [Concomitant]
     Active Substance: LOSARTAN
     Indication: HYPERTENSION
     Dosage: 50 UNK, UNKNOWN FREQ.
     Route: 065

REACTIONS (5)
  - Metastatic pain [Unknown]
  - Activities of daily living impaired [Unknown]
  - Gait disturbance [Unknown]
  - Metastases to spine [Recovering/Resolving]
  - Malignant neoplasm progression [Not Recovered/Not Resolved]

NARRATIVE: CASE EVENT DATE: 20141218
